FAERS Safety Report 9348260 (Version 1)
Quarter: 2013Q2

REPORT INFORMATION
  Report Type: Spontaneous
  Country: US (occurrence: US)
  Receive Date: 20130614
  Receipt Date: 20130614
  Transmission Date: 20140414
  Serious: Yes (Other)
  Sender: FDA-Public Use
  Company Number: US-PFIZER INC-2013178670

PATIENT
  Age: 60 Year
  Sex: Female

DRUGS (5)
  1. CELEBREX [Suspect]
     Indication: ARTHRALGIA
     Dosage: 200 MG, 2X/DAY
     Route: 048
     Dates: start: 1984
  2. CELEBREX [Suspect]
     Indication: ARTHRITIS
  3. ASPIRIN [Concomitant]
     Dosage: 81 MG, UNK
  4. DIOVAN [Concomitant]
     Dosage: 320 MG, 1X/DAY
  5. TYLENOL #3 [Concomitant]
     Dosage: 300/30 MG, AS NEEDED

REACTIONS (5)
  - Systemic lupus erythematosus [Unknown]
  - Gastrointestinal haemorrhage [Unknown]
  - Gastrointestinal erosion [Unknown]
  - Blood pressure abnormal [Unknown]
  - Stress [Unknown]
